FAERS Safety Report 19091765 (Version 1)
Quarter: 2021Q2

REPORT INFORMATION
  Report Type: Spontaneous
  Country: US (occurrence: US)
  Receive Date: 20210402
  Receipt Date: 20210402
  Transmission Date: 20210717
  Serious: Yes (Other)
  Sender: FDA-Public Use
  Company Number: None

PATIENT
  Age: 72 Year
  Sex: Male
  Weight: 80.82 kg

DRUGS (8)
  1. LOSARTAN. [Concomitant]
     Active Substance: LOSARTAN
  2. TEMOZOLOMIDE. [Suspect]
     Active Substance: TEMOZOLOMIDE
     Indication: BRAIN NEOPLASM MALIGNANT
     Route: 048
     Dates: start: 20210312, end: 20210402
  3. METAMUCIL [Concomitant]
     Active Substance: PLANTAGO SEED
  4. ROPINIROLE. [Concomitant]
     Active Substance: ROPINIROLE
  5. ONDANSETRON ODT [Suspect]
     Active Substance: ONDANSETRON
     Indication: BRAIN NEOPLASM MALIGNANT
     Dosage: ?          OTHER FREQUENCY:EVERY 8 HOURS;?
     Route: 048
     Dates: start: 20210311
  6. PANTOPRAZOLE [Concomitant]
     Active Substance: PANTOPRAZOLE
  7. TRAMADOL. [Concomitant]
     Active Substance: TRAMADOL
  8. AMLODIPINE [Concomitant]
     Active Substance: AMLODIPINE BESYLATE

REACTIONS (2)
  - Blood disorder [None]
  - Infection [None]

NARRATIVE: CASE EVENT DATE: 20210402
